FAERS Safety Report 10358849 (Version 1)
Quarter: 2014Q3

REPORT INFORMATION
  Report Type: Spontaneous
  Country: JP (occurrence: JP)
  Receive Date: 20140804
  Receipt Date: 20140804
  Transmission Date: 20150326
  Serious: Yes (Other)
  Sender: FDA-Public Use
  Company Number: JP-ROCHE-1439479

PATIENT
  Age: 76 Year
  Sex: Female

DRUGS (1)
  1. GANCICLOVIR [Suspect]
     Active Substance: GANCICLOVIR
     Indication: CYTOMEGALOVIRUS ENTERITIS
     Dosage: 10 MG/KG BODY WEIGHT
     Route: 042

REACTIONS (1)
  - Interstitial lung disease [Recovering/Resolving]
